FAERS Safety Report 6643440-2 (Version None)
Quarter: 2010Q1

REPORT INFORMATION
  Report Type: 
  Country: None (occurrence: None)
  Receive Date: 20100319
  Receipt Date: 20100312
  Transmission Date: 20100710
  Serious: Yes (Other)
  Sender: FDA-Public Use
  Company Number: JP-MERCK-1003USA02547

PATIENT
  Age: 68 Year
  Sex: Male

DRUGS (10)
  1. JANUVIA [Suspect]
     Dosage: AFTER BREAKFAST
     Route: 048
     Dates: start: 20100312
  2. ASPIRIN [Concomitant]
     Dosage: AFTER BREAKFAST
     Route: 048
  3. WARFARIN POTASSIUM [Concomitant]
     Route: 048
  4. OMEPRAL [Concomitant]
     Dosage: AFTER BREAKFAST
     Route: 048
  5. LIVALO [Concomitant]
     Route: 048
  6. CANDESARTAN CILEXETIL [Concomitant]
     Dosage: AFTER BREAKFAST
     Route: 048
  7. SIGMART [Concomitant]
     Route: 048
  8. MUCOSTA [Concomitant]
     Route: 048
  9. ARTIST [Concomitant]
     Dosage: AFTER BREAKFAST AND AFTER SUPPER
     Route: 048
  10. MAGMITT [Concomitant]
     Route: 048

REACTIONS (2)
  - CHEST PAIN [None]
  - ERYTHEMA [None]
